FAERS Safety Report 8050268-8 (Version None)
Quarter: 2012Q1

REPORT INFORMATION
  Report Type: 
  Country: None (occurrence: None)
  Receive Date: 20120117
  Receipt Date: 20120111
  Transmission Date: 20120608
  Serious: Yes (Congenital Anomaly, Other)
  Sender: FDA-Public Use
  Company Number: US-PFIZER INC-2011158668

PATIENT
  Sex: Male
  Weight: 2.57 kg

DRUGS (1)
  1. SERTRALINE HYDROCHLORIDE [Suspect]
     Dosage: 50 MG, 1X/DAY
     Route: 064
     Dates: start: 20080101

REACTIONS (18)
  - SUBDURAL HAEMATOMA [None]
  - ATRIAL SEPTAL DEFECT [None]
  - RESPIRATORY PAPILLOMA [None]
  - FOETAL GROWTH RESTRICTION [None]
  - HIP DYSPLASIA [None]
  - DEVELOPMENTAL DELAY [None]
  - DUODENAL ATRESIA [None]
  - PATENT DUCTUS ARTERIOSUS [None]
  - BRONCHOMALACIA [None]
  - FAILURE TO THRIVE [None]
  - TORTICOLLIS [None]
  - MATERNAL EXPOSURE TIMING UNSPECIFIED [None]
  - HYPOSPADIAS [None]
  - MATERNAL DRUGS AFFECTING FOETUS [None]
  - PULMONARY ARTERIAL HYPERTENSION [None]
  - GASTROOESOPHAGEAL REFLUX DISEASE [None]
  - PLAGIOCEPHALY [None]
  - ACUTE RESPIRATORY FAILURE [None]
